FAERS Safety Report 23348563 (Version 1)
Quarter: 2023Q4

REPORT INFORMATION
  Report Type: Spontaneous
  Country: JP (occurrence: JP)
  Receive Date: 20231228
  Receipt Date: 20231228
  Transmission Date: 20240110
  Serious: Yes (Hospitalization)
  Sender: FDA-Public Use
  Company Number: JP-BIOGEN-2023BI01242458

PATIENT
  Age: 71 Year
  Sex: Female

DRUGS (7)
  1. TECFIDERA [Suspect]
     Active Substance: DIMETHYL FUMARATE
     Indication: Multiple sclerosis
     Route: 050
  2. TECFIDERA [Suspect]
     Active Substance: DIMETHYL FUMARATE
     Route: 050
  3. LYRICA [Concomitant]
     Active Substance: PREGABALIN
     Route: 050
  4. GASTER [Concomitant]
     Active Substance: FAMOTIDINE
     Route: 050
  5. REPAGLINIDE [Concomitant]
     Active Substance: REPAGLINIDE
     Route: 050
  6. METGLUCO [Concomitant]
     Active Substance: METFORMIN HYDROCHLORIDE
     Route: 050
  7. LINAGLIPTIN [Concomitant]
     Active Substance: LINAGLIPTIN
     Route: 050

REACTIONS (1)
  - Fracture [Unknown]
